FAERS Safety Report 24718121 (Version 1)
Quarter: 2024Q4

REPORT INFORMATION
  Report Type: Spontaneous
  Country: US (occurrence: US)
  Receive Date: 20241210
  Receipt Date: 20241210
  Transmission Date: 20250115
  Serious: No
  Sender: TEVA
  Company Number: US-TEVA-VS-3266974

PATIENT
  Sex: Female

DRUGS (2)
  1. HYDROCHLOROTHIAZIDE [Suspect]
     Active Substance: HYDROCHLOROTHIAZIDE
     Indication: Hypercalciuria
     Route: 065
  2. TYMLOS [Suspect]
     Active Substance: ABALOPARATIDE
     Indication: Product used for unknown indication
     Route: 058
     Dates: start: 2023

REACTIONS (4)
  - Blood calcium increased [Not Recovered/Not Resolved]
  - Fracture [Unknown]
  - Hypercalciuria [Unknown]
  - Fall [Unknown]

NARRATIVE: CASE EVENT DATE: 20240101
